FAERS Safety Report 5711299-3 (Version None)
Quarter: 2008Q2

REPORT INFORMATION
  Report Type: 
  Country: None (occurrence: None)
  Receive Date: 20080415
  Receipt Date: 20080403
  Transmission Date: 20081010
  Serious: Yes (Death, Hospitalization)
  Sender: FDA-Public Use
  Company Number: CIP08000145

PATIENT
  Age: 90 Year
  Sex: Female

DRUGS (4)
  1. ACTONEL [Suspect]
     Dosage: ORAL
     Route: 048
     Dates: start: 19980101, end: 20080101
  2. ATENOLOL [Concomitant]
  3. METOCLOPRAMIDE [Concomitant]
  4. MORPHINE [Concomitant]

REACTIONS (2)
  - BLADDER CANCER [None]
  - METASTASIS [None]
